FAERS Safety Report 7728642-6 (Version None)
Quarter: 2011Q3

REPORT INFORMATION
  Report Type: 
  Country: None (occurrence: None)
  Receive Date: 20110906
  Receipt Date: 20110823
  Transmission Date: 20111222
  Serious: Yes (Other)
  Sender: FDA-Public Use
  Company Number: US-UCBSA-040033

PATIENT
  Sex: Male

DRUGS (4)
  1. KEPPRA [Suspect]
     Indication: EPILEPSY
     Route: 064
     Dates: end: 20090203
  2. FOLIC ACID [Concomitant]
     Route: 064
  3. KEPPRA XR [Suspect]
     Indication: EPILEPSY
     Route: 064
     Dates: start: 20090203
  4. PRENATAL VITAMINS [Concomitant]
     Route: 064

REACTIONS (5)
  - CHOKING [None]
  - MATERNAL EXPOSURE DURING PREGNANCY [None]
  - SLEEP DISORDER [None]
  - RESTLESSNESS [None]
  - DEVELOPMENTAL DELAY [None]
